FAERS Safety Report 5008858-2 (Version None)
Quarter: 2006Q2

REPORT INFORMATION
  Report Type: 
  Country: None (occurrence: None)
  Receive Date: 20060523
  Receipt Date: 20060131
  Transmission Date: 20061013
  Serious: Yes (Hospitalization)
  Sender: FDA-Public Use
  Company Number: US-GLAXOSMITHKLINE-A0592009A

PATIENT
  Age: 65 Year
  Sex: Male
  Weight: 77.3 kg

DRUGS (8)
  1. BEXXAR [Suspect]
     Indication: MANTLE CELL LYMPHOMA
     Dosage: 450MG SINGLE DOSE
     Route: 042
     Dates: start: 20031009, end: 20031009
  2. IODINE I 131 TOSITUMOMAB [Suspect]
     Indication: MANTLE CELL LYMPHOMA
     Dosage: 533MCI SINGLE DOSE
     Route: 042
     Dates: start: 20031009, end: 20031009
  3. BEXXAR [Suspect]
     Dosage: 450MG SINGLE DOSE
     Route: 042
     Dates: start: 20031016, end: 20031016
  4. IODINE I 131 TOSITUMOMAB [Suspect]
     Dosage: 91MCI SINGLE DOSE
     Route: 042
     Dates: start: 20031016, end: 20031016
  5. CYCLOPHOSPHAMIDE [Suspect]
     Indication: MANTLE CELL LYMPHOMA
  6. DOXORUBICIN HCL [Suspect]
     Indication: MANTLE CELL LYMPHOMA
  7. ONCOVIN [Suspect]
     Indication: MANTLE CELL LYMPHOMA
  8. PREDNISONE TAB [Suspect]
     Indication: MANTLE CELL LYMPHOMA

REACTIONS (6)
  - ATRIAL FIBRILLATION [None]
  - CARDIAC FAILURE CONGESTIVE [None]
  - COUGH [None]
  - DISEASE PROGRESSION [None]
  - DYSPNOEA [None]
  - PLEURAL EFFUSION [None]
